FAERS Safety Report 6223723-0 (Version None)
Quarter: 2009Q2

REPORT INFORMATION
  Report Type: 
  Country: None (occurrence: None)
  Receive Date: 20090611
  Receipt Date: 20090305
  Transmission Date: 20091009
  Serious: No
  Sender: FDA-Public Use
  Company Number: PR-ABBOTT-09P-131-0560696-00

PATIENT
  Sex: Female
  Weight: 71.278 kg

DRUGS (11)
  1. HUMIRA [Suspect]
     Indication: PSORIASIS
     Dosage: 1 PEN
     Route: 058
     Dates: start: 20081201
  2. EVISTA [Concomitant]
     Indication: FIBROCYSTIC BREAST DISEASE
     Route: 048
  3. CALTRATED PLUS D [Concomitant]
     Indication: MINERAL SUPPLEMENTATION
     Route: 048
  4. DIOVAN [Concomitant]
     Indication: HYPERTENSION
     Route: 048
  5. TOPROL-XL [Concomitant]
     Indication: HYPERTENSION
     Route: 048
  6. MELOXICAM [Concomitant]
     Indication: PAIN
     Route: 048
  7. BETAMETHASONE W/CLOTRIMAZOLE [Concomitant]
     Indication: GENITAL ERYTHEMA
     Route: 061
  8. NEXIUM [Concomitant]
     Indication: GASTROOESOPHAGEAL REFLUX DISEASE
     Route: 048
  9. PRILOSEC [Concomitant]
     Indication: GASTROOESOPHAGEAL REFLUX DISEASE
     Route: 048
  10. LIBRAX [Concomitant]
     Indication: IRRITABLE BOWEL SYNDROME
     Route: 048
  11. BENTYL [Concomitant]
     Indication: IRRITABLE BOWEL SYNDROME
     Route: 048

REACTIONS (1)
  - PSORIASIS [None]
